FAERS Safety Report 17197195 (Version 2)
Quarter: 2020Q1

REPORT INFORMATION
  Report Type: Spontaneous
  Country: US (occurrence: US)
  Receive Date: 20191224
  Receipt Date: 20200120
  Transmission Date: 20200409
  Serious: Yes (Hospitalization)
  Sender: FDA-Public Use
  Company Number: US-ASTRAZENECA-2019SF84857

PATIENT
  Sex: Male
  Weight: 5.1 kg

DRUGS (5)
  1. SYNAGIS [Suspect]
     Active Substance: PALIVIZUMAB
     Indication: HEART DISEASE CONGENITAL
     Route: 030
     Dates: start: 201912
  2. SYNAGIS [Suspect]
     Active Substance: PALIVIZUMAB
     Indication: ANTIVIRAL PROPHYLAXIS
     Route: 030
     Dates: start: 201912
  3. LASIX [Concomitant]
     Active Substance: FUROSEMIDE
  4. SYNAGIS [Suspect]
     Active Substance: PALIVIZUMAB
     Indication: COARCTATION OF THE AORTA
     Route: 030
     Dates: start: 201912
  5. ATENOLOL. [Concomitant]
     Active Substance: ATENOLOL

REACTIONS (2)
  - Respiratory syncytial virus infection [Unknown]
  - Bronchiolitis [Unknown]
